FAERS Safety Report 25839029 (Version 1)
Quarter: 2025Q3

REPORT INFORMATION
  Report Type: Spontaneous
  Country: CO (occurrence: CO)
  Receive Date: 20250924
  Receipt Date: 20250924
  Transmission Date: 20251020
  Serious: Yes (Other)
  Sender: REGENERON
  Company Number: CO-BAYER-2025A125514

PATIENT
  Sex: Male

DRUGS (1)
  1. EYLEA [Suspect]
     Active Substance: AFLIBERCEPT
     Indication: Macular degeneration
     Dosage: UNK, Q1MON, SOLUTION FOR INJECTION IN PRE-FILLED SYRINGE, 40MG/ML
     Route: 031
     Dates: start: 20250715

REACTIONS (2)
  - Aphakia [Unknown]
  - Blindness unilateral [Unknown]

NARRATIVE: CASE EVENT DATE: 20250715
